FAERS Safety Report 10609889 (Version 1)
Quarter: 2014Q4

REPORT INFORMATION
  Report Type: Spontaneous
  Country: US (occurrence: US)
  Receive Date: 20141126
  Receipt Date: 20141126
  Transmission Date: 20150529
  Serious: No
  Sender: FDA-Public Use
  Company Number: US-JNJFOC-20141113510

PATIENT
  Sex: Female
  Weight: 58.97 kg

DRUGS (2)
  1. FENTANYL TRANSDERMAL SYSTEM [Suspect]
     Active Substance: FENTANYL
     Indication: PAIN
     Route: 062
     Dates: start: 2005, end: 2007
  2. DEPAKOTE [Concomitant]
     Active Substance: DIVALPROEX SODIUM
     Indication: DEPRESSION
     Route: 048

REACTIONS (4)
  - Application site vesicles [Recovered/Resolved]
  - Wrong technique in drug usage process [Unknown]
  - Product quality issue [Recovered/Resolved]
  - Application site pruritus [Recovered/Resolved]
